FAERS Safety Report 23768738 (Version 2)
Quarter: 2024Q2

REPORT INFORMATION
  Report Type: Spontaneous
  Country: US (occurrence: US)
  Receive Date: 20240422
  Receipt Date: 20240614
  Transmission Date: 20240716
  Serious: No
  Sender: FDA-Public Use
  Company Number: US-ViiV Healthcare Limited-109831

PATIENT
  Age: 30 Year
  Sex: Male
  Weight: 107 kg

DRUGS (1)
  1. JULUCA [Suspect]
     Active Substance: DOLUTEGRAVIR SODIUM\RILPIVIRINE HYDROCHLORIDE
     Indication: Product used for unknown indication
     Dosage: UNK, QD

REACTIONS (12)
  - Depression [Unknown]
  - Constipation [Not Recovered/Not Resolved]
  - Pain [Unknown]
  - Discomfort [Unknown]
  - Condition aggravated [Unknown]
  - Abdominal pain [Unknown]
  - Influenza [Unknown]
  - Nasopharyngitis [Unknown]
  - Pyrexia [Unknown]
  - Secretion discharge [Unknown]
  - General physical health deterioration [Unknown]
  - Malaise [Unknown]

NARRATIVE: CASE EVENT DATE: 20240112
